FAERS Safety Report 7952632-1 (Version None)
Quarter: 2011Q4

REPORT INFORMATION
  Report Type: 
  Country: None (occurrence: None)
  Receive Date: 20111201
  Receipt Date: 20111128
  Transmission Date: 20120403
  Serious: Yes (Death, Life-Threatening, Hospitalization)
  Sender: FDA-Public Use
  Company Number: DE-SANOFI-AVENTIS-2011SA073751

PATIENT
  Age: 94 Year
  Sex: Male

DRUGS (8)
  1. ZOLPIDEM [Suspect]
     Route: 048
     Dates: start: 20110122, end: 20110414
  2. ZOLPIDEM [Suspect]
     Route: 048
     Dates: start: 20110415, end: 20110429
  3. CITALOPRAM [Concomitant]
     Route: 048
     Dates: start: 20110411, end: 20110503
  4. ACETYLSALICYLIC ACID SRT [Concomitant]
     Route: 048
     Dates: start: 20110122, end: 20110503
  5. TAMSULOSIN HCL [Concomitant]
     Route: 048
     Dates: start: 20110122, end: 20110503
  6. TORSEMIDE [Concomitant]
     Route: 048
     Dates: start: 20110415, end: 20110429
  7. TORSEMIDE [Concomitant]
     Route: 048
     Dates: start: 20110430, end: 20110503
  8. CITALOPRAM [Concomitant]
     Route: 048
     Dates: start: 20110407, end: 20110410

REACTIONS (1)
  - PNEUMONIA [None]
